FAERS Safety Report 22390073 (Version 1)
Quarter: 2023Q2

REPORT INFORMATION
  Report Type: Spontaneous
  Country: US (occurrence: US)
  Receive Date: 20230531
  Receipt Date: 20230531
  Transmission Date: 20230722
  Serious: No
  Sender: FDA-Public Use
  Company Number: US-Covis Pharma GmbH-2023COV01215

PATIENT
  Sex: Male

DRUGS (4)
  1. RILUZOLE [Suspect]
     Active Substance: RILUZOLE
     Indication: Product used for unknown indication
     Route: 048
  2. RADICAVA [Suspect]
     Active Substance: EDARAVONE
     Indication: Amyotrophic lateral sclerosis
     Dosage: QD FOR 14 DAYS ON, THEN 14 DAYS OFF
     Route: 048
     Dates: start: 202305
  3. RELYVRIO [Suspect]
     Active Substance: SODIUM PHENYLBUTYRATE\TAURURSODIOL
     Indication: Product used for unknown indication
     Dosage: QD FOR 3 WEEKS
  4. RELYVRIO [Suspect]
     Active Substance: SODIUM PHENYLBUTYRATE\TAURURSODIOL
     Dosage: 1 PACKET, BID THEREAFTER

REACTIONS (5)
  - Amnesia [Unknown]
  - Urticaria [Unknown]
  - Pruritus [Unknown]
  - Gastrointestinal disorder [Unknown]
  - Product use complaint [Unknown]
